FAERS Safety Report 8060176-4 (Version None)
Quarter: 2012Q1

REPORT INFORMATION
  Report Type: 
  Country: None (occurrence: None)
  Receive Date: 20120119
  Receipt Date: 20120119
  Transmission Date: 20120608
  Serious: Yes (Hospitalization)
  Sender: FDA-Public Use
  Company Number: None

PATIENT
  Age: 67 Year
  Sex: Female
  Weight: 112.3 kg

DRUGS (15)
  1. EMO CORT [Concomitant]
  2. SINGULAIR [Concomitant]
  3. POTASSIUM CHLORIDE [Concomitant]
  4. OMEPRAZOLE [Concomitant]
  5. DICYCLOMINE [Concomitant]
  6. TORSEMIDE [Concomitant]
  7. OXYCONTIN [Concomitant]
  8. ESTRADIOL [Concomitant]
  9. CARDIZEM LA [Concomitant]
  10. CYMBALTA [Concomitant]
  11. NEURONTIN [Concomitant]
  12. MACROBID [Concomitant]
  13. NYSTATIN [Concomitant]
  14. MOTRIN [Concomitant]
  15. TIZANIDINE HCL [Suspect]
     Dosage: 4MG TID PRN SPASM PO
     Route: 048

REACTIONS (3)
  - MENTAL STATUS CHANGES [None]
  - CELLULITIS [None]
  - HALLUCINATION, VISUAL [None]
